FAERS Safety Report 25649151 (Version 2)
Quarter: 2025Q3

REPORT INFORMATION
  Report Type: Spontaneous
  Country: US (occurrence: US)
  Receive Date: 20250806
  Receipt Date: 20250901
  Transmission Date: 20251021
  Serious: No
  Sender: APOTEX
  Company Number: US-APOTEX-2025AP010769

PATIENT
  Sex: Female

DRUGS (2)
  1. AZELASTINE HYDROCHLORIDE [Suspect]
     Active Substance: AZELASTINE HYDROCHLORIDE
     Indication: Allergy to plants
     Dosage: 4 GTT DROPS, QD (1 DROP IN THE MORNING AND 1 AT NIGHT IN BOTH EYES)
     Route: 047
     Dates: start: 2023
  2. AZELASTINE HYDROCHLORIDE [Suspect]
     Active Substance: AZELASTINE HYDROCHLORIDE
     Indication: Hypersensitivity

REACTIONS (3)
  - Vision blurred [Recovered/Resolved]
  - Eye pain [Recovered/Resolved]
  - Eye irritation [Recovered/Resolved]
